FAERS Safety Report 5251982-X (Version None)
Quarter: 2007Q1

REPORT INFORMATION
  Report Type: 
  Country: None (occurrence: None)
  Receive Date: 20070226
  Receipt Date: 20070209
  Transmission Date: 20070707
  Serious: Yes (Hospitalization, Other)
  Sender: FDA-Public Use
  Company Number: 150001L07MEX

PATIENT
  Age: 25 Year
  Sex: Female

DRUGS (2)
  1. CHORIONIC GONADOTROPIN (CHORIONIC GONADOTROPHIN) [Suspect]
     Indication: ANOVULATORY CYCLE
  2. MENOTROPINS [Suspect]

REACTIONS (14)
  - ASCITES [None]
  - CAESAREAN SECTION [None]
  - DRUG EXPOSURE DURING PREGNANCY [None]
  - HAEMATOCRIT INCREASED [None]
  - HAEMOGLOBIN INCREASED [None]
  - HYPOALBUMINAEMIA [None]
  - HYPOTENSION [None]
  - INTRA-UTERINE DEATH [None]
  - OEDEMA PERIPHERAL [None]
  - OVARIAN HYPERSTIMULATION SYNDROME [None]
  - PLATELET COUNT INCREASED [None]
  - PREMATURE BABY [None]
  - TACHYCARDIA [None]
  - TWIN PREGNANCY [None]
